FAERS Safety Report 23608349 (Version 1)
Quarter: 2024Q1

REPORT INFORMATION
  Report Type: Spontaneous
  Country: CN (occurrence: CN)
  Receive Date: 20240307
  Receipt Date: 20240307
  Transmission Date: 20240410
  Serious: Yes (Other)
  Sender: FDA-Public Use
  Company Number: CN-JNJFOC-20240277061

PATIENT
  Age: 17 Year
  Sex: Female

DRUGS (3)
  1. INVEGA [Suspect]
     Active Substance: PALIPERIDONE
     Indication: Bipolar disorder
     Route: 048
  2. INVEGA [Suspect]
     Active Substance: PALIPERIDONE
     Route: 048
  3. LITHIUM CARBONATE [Interacting]
     Active Substance: LITHIUM CARBONATE
     Indication: Bipolar disorder
     Route: 065

REACTIONS (5)
  - Sinus arrest [Recovered/Resolved]
  - Hypothyroidism [Recovered/Resolved]
  - Sinus bradycardia [Recovered/Resolved]
  - Drug interaction [Unknown]
  - Off label use [Unknown]
